FAERS Safety Report 6679581-3 (Version None)
Quarter: 2010Q2

REPORT INFORMATION
  Report Type: 
  Country: None (occurrence: None)
  Receive Date: 20100409
  Receipt Date: 20100326
  Transmission Date: 20101027
  Serious: Yes (Hospitalization)
  Sender: FDA-Public Use
  Company Number: A-US2010-35206

PATIENT
  Age: 80 Year
  Sex: Female

DRUGS (3)
  1. TRACLEER [Suspect]
     Indication: PULMONARY ARTERIAL HYPERTENSION
     Dosage: ORAL
     Route: 048
     Dates: start: 20070904
  2. COUMADIN [Concomitant]
  3. TADALAFIL (TADALAFIL) [Concomitant]

REACTIONS (1)
  - HIP FRACTURE [None]
